FAERS Safety Report 13541570 (Version 1)
Quarter: 2017Q2

REPORT INFORMATION
  Report Type: Spontaneous
  Country: FR (occurrence: FR)
  Receive Date: 20170512
  Receipt Date: 20170512
  Transmission Date: 20170830
  Serious: Yes (Death, Other)
  Sender: FDA-Public Use
  Company Number: FR-APOPHARMA USA, INC.-2017AP012177

PATIENT
  Sex: Female

DRUGS (1)
  1. ALKERAN [Suspect]
     Active Substance: MELPHALAN
     Indication: ACUTE MYELOID LEUKAEMIA
     Dosage: 140 UNK, UNKNOWN
     Route: 065

REACTIONS (2)
  - Acute promyelocytic leukaemia [Unknown]
  - Pulmonary haemorrhage [Fatal]
